FAERS Safety Report 9856438 (Version 3)
Quarter: 2015Q1

REPORT INFORMATION
  Report Type: Spontaneous
  Country: US (occurrence: US)
  Receive Date: 20140130
  Receipt Date: 20150129
  Transmission Date: 20150721
  Serious: Yes (Hospitalization, Other)
  Sender: FDA-Public Use
  Company Number: US-PFIZER INC-2014026152

PATIENT
  Age: 66 Year
  Sex: Male

DRUGS (11)
  1. ALLOPURINOL. [Concomitant]
     Active Substance: ALLOPURINOL
     Dosage: 100 MG, 2X/DAY
     Route: 048
  2. MIDODRINE [Concomitant]
     Active Substance: MIDODRINE
     Dosage: 5 MG, 3X/DAY (1 PRN WITH DIALYSIS)
     Route: 048
  3. ALLOPURINOL. [Concomitant]
     Active Substance: ALLOPURINOL
     Dosage: 100 MG, (EVERY MORNING)
     Route: 048
  4. RENVELA [Concomitant]
     Active Substance: SEVELAMER CARBONATE
     Dosage: 800 MG, 3X/DAY
     Route: 048
  5. TYLENOL PM, EXTRA STRENGTH [Concomitant]
     Dosage: 25-500 MG, 3X/DAY
     Route: 048
  6. LYRICA [Suspect]
     Active Substance: PREGABALIN
     Dosage: 25 MG, 1X/DAY
     Route: 048
  7. LYRICA [Suspect]
     Active Substance: PREGABALIN
     Dosage: 75 MG, 2X/DAY
     Route: 048
  8. PRESERVISION AREDS [Concomitant]
     Dosage: 14, 320-226-200, 1X/DAY (1 CAPSULE ONCE A DAY)
     Route: 048
  9. CARNITOR [Concomitant]
     Active Substance: LEVOCARNITINE
     Dosage: 330 MG, 3X/DAY
     Route: 048
  10. ADVIL [Concomitant]
     Active Substance: IBUPROFEN
     Dosage: 200 MG, EVERY 4 HRS
     Route: 048
  11. MELATONIN [Concomitant]
     Active Substance: MELATONIN
     Dosage: 5 MG,EVERY OTHER DAY (TAKE PREDIALYSIS)
     Route: 048

REACTIONS (4)
  - Chronic kidney disease [Unknown]
  - Focal segmental glomerulosclerosis [Unknown]
  - Anaemia [Unknown]
  - Renal failure [Unknown]
